FAERS Safety Report 22092032 (Version 2)
Quarter: 2023Q2

REPORT INFORMATION
  Report Type: Spontaneous
  Country: US (occurrence: US)
  Receive Date: 20230314
  Receipt Date: 20230403
  Transmission Date: 20230721
  Serious: No
  Sender: FDA-Public Use
  Company Number: US-AMGEN-USASP2023039978

PATIENT
  Age: 62 Year
  Sex: Male

DRUGS (1)
  1. REPATHA [Suspect]
     Active Substance: EVOLOCUMAB
     Indication: Hypercholesterolaemia
     Dosage: 140 MILLIGRAM, Q2WK
     Route: 058
     Dates: start: 202302

REACTIONS (2)
  - Device difficult to use [Recovered/Resolved]
  - Drug dose omission by device [Recovered/Resolved]

NARRATIVE: CASE EVENT DATE: 20230201
